FAERS Safety Report 20471110 (Version 5)
Quarter: 2022Q2

REPORT INFORMATION
  Report Type: Report from Study
  Country: CN (occurrence: None)
  Receive Date: 20220214
  Receipt Date: 20220615
  Transmission Date: 20220721
  Serious: Yes (Life-Threatening, Hospitalization)
  Sender: FDA-Public Use
  Company Number: CN-ROCHE-3023600

PATIENT
  Age: 49 Year
  Sex: Male
  Weight: 64 kg

DRUGS (16)
  1. ATEZOLIZUMAB [Suspect]
     Active Substance: ATEZOLIZUMAB
     Indication: Non-small cell lung cancer stage IV
     Dosage: DATE OF MOST RECENT DOSE OF STUDY DRUG PRIOR TO ADVERSE EVENT 27-JAN-2022
     Route: 041
     Dates: start: 20211215
  2. BEVACIZUMAB [Suspect]
     Active Substance: BEVACIZUMAB
     Indication: Non-small cell lung cancer stage IV
     Dosage: DATE OF MOST RECENT DOSE (960 MG) OF STUDY DRUG PRIOR TO ADVERSE EVENT 27/JAN/2022
     Route: 042
     Dates: start: 20211215
  3. CARBOPLATIN [Suspect]
     Active Substance: CARBOPLATIN
     Indication: Non-small cell lung cancer stage IV
     Dosage: DATE OF MOST RECENT DOSE(507 MG) OF STUDY DRUG PRIOR TO ADVERSE EVENT 27/JAN/2022
     Route: 042
     Dates: start: 20211215
  4. PEMETREXED [Suspect]
     Active Substance: PEMETREXED
     Indication: Non-small cell lung cancer stage IV
     Dosage: DATE OF MOST RECENT DOSE(850 MG) OF STUDY DRUG PRIOR TO ADVERSE EVENT 27/JAN/2022
     Route: 042
     Dates: start: 20211215
  5. FOLIC ACID [Concomitant]
     Active Substance: FOLIC ACID
     Dates: start: 20211114
  6. GLUTATHIONE [Concomitant]
     Active Substance: GLUTATHIONE
     Dates: start: 20220305, end: 20220307
  7. HERBALS\DIAMMONIUM GLYCYRRHIZINATE [Concomitant]
     Active Substance: HERBALS\DIAMMONIUM GLYCYRRHIZINATE
     Dates: start: 20220305, end: 20220307
  8. ILAPRAZOLE [Concomitant]
     Active Substance: ILAPRAZOLE
     Dates: start: 20220305, end: 20220307
  9. PREDNISONE ACETATE [Concomitant]
     Active Substance: PREDNISONE ACETATE
     Route: 048
     Dates: start: 20220305, end: 20220320
  10. PREDNISONE ACETATE [Concomitant]
     Active Substance: PREDNISONE ACETATE
     Route: 048
     Dates: start: 20220327, end: 20220407
  11. PREDNISONE ACETATE [Concomitant]
     Active Substance: PREDNISONE ACETATE
     Dosage: 40 TABLET
     Route: 048
     Dates: start: 20220408, end: 20220415
  12. PREDNISONE ACETATE [Concomitant]
     Active Substance: PREDNISONE ACETATE
     Route: 048
     Dates: start: 20220416, end: 20220430
  13. PREDNISONE ACETATE [Concomitant]
     Active Substance: PREDNISONE ACETATE
     Route: 048
     Dates: start: 20220501, end: 20220507
  14. PREDNISONE ACETATE [Concomitant]
     Active Substance: PREDNISONE ACETATE
     Route: 048
     Dates: start: 20220508, end: 20220514
  15. PREDNISONE ACETATE [Concomitant]
     Active Substance: PREDNISONE ACETATE
     Route: 048
     Dates: start: 20220515, end: 20220521
  16. PREDNISONE ACETATE [Concomitant]
     Active Substance: PREDNISONE ACETATE
     Route: 048
     Dates: start: 20220522, end: 20220606

REACTIONS (3)
  - Platelet count decreased [Recovered/Resolved]
  - Hepatic function abnormal [Recovering/Resolving]
  - Immune-mediated renal disorder [Recovering/Resolving]

NARRATIVE: CASE EVENT DATE: 20220209
